FAERS Safety Report 22297078 (Version 2)
Quarter: 2023Q2

REPORT INFORMATION
  Report Type: Spontaneous
  Country: US (occurrence: US)
  Receive Date: 20230509
  Receipt Date: 20230607
  Transmission Date: 20230721
  Serious: Yes (Other)
  Sender: FDA-Public Use
  Company Number: US-AUROBINDO-AUR-APL-2023-035042

PATIENT
  Age: 37 Year
  Sex: Female
  Weight: 50 kg

DRUGS (3)
  1. CAPECITABINE [Suspect]
     Active Substance: CAPECITABINE
     Indication: Colorectal cancer stage III
     Dosage: 28000 MG/M2, CYCLICAL (WICE DAILY BY MOUTH FOR THE FIRST 2 WEEKS OF 21-DAY CYCLES AT 1,000 MG/M2)
     Route: 048
     Dates: start: 202109
  2. OXALIPLATIN [Suspect]
     Active Substance: OXALIPLATIN
     Indication: Chemotherapy
     Dosage: 130 MG/M2, INFUSED EVERY 4 WEEKS
     Route: 065
  3. OXALIPLATIN [Suspect]
     Active Substance: OXALIPLATIN
     Indication: Colorectal cancer stage III
     Dosage: 200 MILLIGRAM, CYCLICAL (130 MG/M2 EVERY 3 WEEKS)
     Route: 065
     Dates: start: 202109

REACTIONS (2)
  - Drug screen [Unknown]
  - Lactation insufficiency [Unknown]

NARRATIVE: CASE EVENT DATE: 20210101
